FAERS Safety Report 6645766-5 (Version None)
Quarter: 2010Q1

REPORT INFORMATION
  Report Type: 
  Country: None (occurrence: None)
  Receive Date: 20100318
  Receipt Date: 20100318
  Transmission Date: 20100710
  Serious: Yes (Other)
  Sender: FDA-Public Use
  Company Number: None

PATIENT
  Age: 66 Year
  Sex: Female
  Weight: 55.2 kg

DRUGS (3)
  1. GEMZAR [Suspect]
     Indication: OVARIAN CANCER
     Dosage: 1620MG EVERY 14 DAYS IV DRIP
     Route: 041
     Dates: start: 20100114, end: 20100311
  2. CARBOPLATIN [Suspect]
     Indication: OVARIAN CANCER
     Dosage: 311.06 EVERY 14 DAYS IV DRIP
     Route: 041
     Dates: start: 20100114, end: 20100311
  3. BEVACIZUMAB [Concomitant]

REACTIONS (2)
  - GRANULOCYTOPENIA [None]
  - NEUTROPENIA [None]
